FAERS Safety Report 7574768-X (Version None)
Quarter: 2011Q2

REPORT INFORMATION
  Report Type: 
  Country: None (occurrence: None)
  Receive Date: 20110627
  Receipt Date: 20110502
  Transmission Date: 20111010
  Serious: Yes (Hospitalization)
  Sender: FDA-Public Use
  Company Number: US-BAYER-2011-014466

PATIENT
  Age: 55 Year
  Sex: Male

DRUGS (3)
  1. SORAFENIB (RAF KINASE INHIBITOR) [Suspect]
     Indication: HEPATIC NEOPLASM MALIGNANT
     Dosage: 400 MG, BID
     Route: 048
     Dates: start: 20110201
  2. SORAFENIB (RAF KINASE INHIBITOR) [Suspect]
     Dosage: 200 MG, BID
     Route: 048
     Dates: start: 20110201
  3. SORAFENIB (RAF KINASE INHIBITOR) [Suspect]
     Dosage: 600 MG, (2 IN AM AND 1 IN PM)
     Route: 048

REACTIONS (16)
  - APHAGIA [None]
  - FATIGUE [None]
  - DIARRHOEA [None]
  - PAIN [None]
  - NAUSEA [None]
  - MUSCLE SPASMS [None]
  - ABDOMINAL PAIN UPPER [None]
  - NASOPHARYNGITIS [None]
  - GASTROINTESTINAL HAEMORRHAGE [None]
  - ASTHENIA [None]
  - NASAL CONGESTION [None]
  - FEELING HOT [None]
  - RETCHING [None]
  - SNEEZING [None]
  - HAEMATEMESIS [None]
  - GASTROINTESTINAL INJURY [None]
